FAERS Safety Report 10402671 (Version 4)
Quarter: 2015Q2

REPORT INFORMATION
  Report Type: Report from Study
  Country: JP (occurrence: JP)
  Receive Date: 20140822
  Receipt Date: 20150415
  Transmission Date: 20150821
  Serious: Yes (Disabling)
  Sender: FDA-Public Use
  Company Number: JP-TAKEDA-2014TJP010863

PATIENT
  Age: 73 Year
  Sex: Male
  Weight: 74.7 kg

DRUGS (12)
  1. MICOMBI COMBINATION [Concomitant]
     Active Substance: HYDROCHLOROTHIAZIDE\TELMISARTAN
     Dosage: 1 DF, QD
     Route: 048
     Dates: start: 20130109, end: 20130410
  2. ATELEC [Concomitant]
     Active Substance: CILNIDIPINE
     Dosage: 15 MG, BID
     Route: 048
     Dates: start: 20120523, end: 20120730
  3. MICARDIS [Concomitant]
     Active Substance: TELMISARTAN
     Dosage: 40 MG, QD
     Route: 048
     Dates: start: 20121219, end: 20130108
  4. ATELEC [Concomitant]
     Active Substance: CILNIDIPINE
     Dosage: 10 MG, QD
     Route: 048
     Dates: start: 20120801, end: 20121120
  5. LIVALO [Concomitant]
     Active Substance: PITAVASTATIN CALCIUM
     Dosage: 2 MG, QD
     Route: 048
     Dates: start: 20110202, end: 20130430
  6. ALLORIN [Concomitant]
     Dosage: UNK
     Route: 048
  7. ALOGLIPTIN [Suspect]
     Active Substance: ALOGLIPTIN
     Indication: TYPE 2 DIABETES MELLITUS
     Dosage: 25 MG, QD
     Route: 048
     Dates: start: 20120425, end: 20130319
  8. JANUVIA [Concomitant]
     Active Substance: SITAGLIPTIN PHOSPHATE
     Indication: TYPE 2 DIABETES MELLITUS
     Dosage: 100 MG, QD
     Route: 048
     Dates: start: 20110330, end: 20120424
  9. MICOMBI COMBINATION [Concomitant]
     Active Substance: HYDROCHLOROTHIAZIDE\TELMISARTAN
     Dosage: 1 DF, QD
     Route: 048
     Dates: start: 20110119, end: 20121218
  10. ATELEC [Concomitant]
     Active Substance: CILNIDIPINE
     Dosage: 20 MG, BID
     Route: 048
     Dates: start: 20120104, end: 20120522
  11. ATELEC [Concomitant]
     Active Substance: CILNIDIPINE
     Dosage: 20 MG, BID
     Route: 048
     Dates: start: 20121121, end: 20130430
  12. ACTOS [Suspect]
     Active Substance: PIOGLITAZONE HYDROCHLORIDE
     Indication: TYPE 2 DIABETES MELLITUS
     Dosage: 15 MG, QD
     Route: 048
     Dates: start: 20120201, end: 20130430

REACTIONS (5)
  - Diabetic nephropathy [Not Recovered/Not Resolved]
  - Diabetic neuropathy [Recovering/Resolving]
  - Condition aggravated [Not Recovered/Not Resolved]
  - Constipation [Recovered/Resolved]
  - Oedema peripheral [Recovering/Resolving]

NARRATIVE: CASE EVENT DATE: 20120620
